FAERS Safety Report 8374480-3 (Version None)
Quarter: 2012Q2

REPORT INFORMATION
  Report Type: 
  Country: None (occurrence: None)
  Receive Date: 20120521
  Receipt Date: 20120510
  Transmission Date: 20120825
  Serious: Yes (Hospitalization)
  Sender: FDA-Public Use
  Company Number: CH-FRI-1000030602

PATIENT
  Sex: Female

DRUGS (16)
  1. SINTROM [Concomitant]
     Indication: ATRIAL FIBRILLATION
     Route: 048
  2. ESCITALOPRAM [Suspect]
     Indication: DEPRESSION
     Dosage: 10 MG
     Route: 048
     Dates: start: 20020101, end: 20120405
  3. TENORMIN [Concomitant]
     Indication: HYPERTENSION
     Dosage: 25 MG
     Route: 048
  4. ROCEPHIN [Concomitant]
     Indication: URINARY TRACT INFECTION
     Dosage: 2 GM
     Route: 042
     Dates: start: 20120409, end: 20120411
  5. TAZOBACTAM [Concomitant]
     Indication: PNEUMONIA BACTERIAL
     Dates: start: 20120411
  6. LEVOFLOXACIN [Suspect]
     Indication: PNEUMONIA BACTERIAL
     Route: 048
     Dates: end: 20120421
  7. SINTROM [Concomitant]
     Indication: ATRIAL FLUTTER
  8. ACETAMINOPHEN [Concomitant]
     Indication: PAIN
     Route: 048
  9. PAMIDRONATE DISODIUM [Concomitant]
     Indication: CALCIUM METABOLISM DISORDER
     Dates: start: 20120411, end: 20120411
  10. ZYPREXA [Suspect]
     Indication: PRODUCT USED FOR UNKNOWN INDICATION
     Dosage: 2.5 MG
     Route: 048
     Dates: start: 20020101, end: 20120405
  11. EUTHYROX [Concomitant]
     Indication: HYPOTHYROIDISM
     Dosage: 0.075 MG
     Route: 048
  12. NITROGLYCERIN [Concomitant]
     Indication: ANGINA PECTORIS
     Route: 048
  13. ESCITALOPRAM [Suspect]
     Dosage: 10 MG
     Route: 048
     Dates: start: 20120411
  14. CORDARONE [Concomitant]
     Indication: ATRIAL FLUTTER
  15. ZOLPIDEM [Suspect]
     Indication: INSOMNIA
     Dosage: 10 MG
     Route: 048
     Dates: start: 20020101, end: 20120405
  16. CORDARONE [Concomitant]
     Indication: ATRIAL FIBRILLATION
     Dosage: 100 MG
     Route: 048

REACTIONS (6)
  - EXTRAPYRAMIDAL DISORDER [None]
  - DELIRIUM [None]
  - ENCEPHALOPATHY [None]
  - TARDIVE DYSKINESIA [None]
  - TREMOR [None]
  - HYPERKINESIA [None]
